FAERS Safety Report 9394402 (Version 1)
Quarter: 2013Q3

REPORT INFORMATION
  Report Type: Spontaneous
  Country: US (occurrence: None)
  Receive Date: 20130709
  Receipt Date: 20130709
  Transmission Date: 20140515
  Serious: Yes (Other)
  Sender: FDA-Public Use
  Company Number: None

PATIENT
  Age: 64 None
  Sex: Female

DRUGS (9)
  1. MONTELUKAST [Suspect]
     Indication: SINUS DISORDER
     Route: 048
     Dates: start: 002005, end: 20130522
  2. METFORMEN [Concomitant]
  3. SYNTHROID [Concomitant]
  4. LORAZAPAM [Concomitant]
  5. FIBER [Concomitant]
  6. LASIX [Concomitant]
  7. ADVIL [Concomitant]
  8. IRON [Concomitant]
  9. VIT D [Concomitant]

REACTIONS (1)
  - Hallucination, visual [None]
